FAERS Safety Report 18704150 (Version 1)
Quarter: 2021Q1

REPORT INFORMATION
  Report Type: Other
  Country: FR (occurrence: FR)
  Receive Date: 20210105
  Receipt Date: 20210105
  Transmission Date: 20210419
  Serious: Yes (Death, Other)
  Sender: FDA-Public Use
  Company Number: FR-CHIESI USA, INC.-FR-2020CHI000697

PATIENT

DRUGS (2)
  1. CUROSURF [Suspect]
     Active Substance: PORACTANT ALFA
     Dosage: UNK
     Route: 007
  2. CUROSURF [Suspect]
     Active Substance: PORACTANT ALFA
     Indication: ALVEOLAR LUNG DISEASE
     Dosage: UNK
     Route: 007

REACTIONS (5)
  - Subcutaneous emphysema [Fatal]
  - Bradycardia neonatal [Recovered/Resolved]
  - Cardio-respiratory arrest neonatal [Fatal]
  - Haemorrhage neonatal [Fatal]
  - Neonatal pneumothorax [Fatal]

NARRATIVE: CASE EVENT DATE: 20201201
